FAERS Safety Report 4367422-9 (Version None)
Quarter: 2004Q2

REPORT INFORMATION
  Report Type: 
  Country: None (occurrence: None)
  Receive Date: 20040528
  Receipt Date: 20040528
  Transmission Date: 20050107
  Serious: Yes (Hospitalization)
  Sender: FDA-Public Use
  Company Number: None

PATIENT
  Sex: Female
  Weight: 56.7903 kg

DRUGS (6)
  1. GEMZAR [Suspect]
     Indication: NON-SMALL CELL LUNG CANCER
     Dosage: 1000 MG/M2 DAY 1,8 Q 21 DAYS  IV
     Route: 042
     Dates: start: 20040429
  2. TAXOL [Suspect]
     Indication: NON-SMALL CELL LUNG CANCER
     Dosage: 200 MG / M2 DAY 1 Q 21 DAYS IV
     Route: 042
     Dates: start: 20040429
  3. HYDROCHLOROTHIAZIDE [Concomitant]
  4. COMPAZINE [Concomitant]
  5. VICODIN [Concomitant]
  6. ATIVAN [Concomitant]

REACTIONS (8)
  - ASTHENIA [None]
  - CONFUSIONAL STATE [None]
  - ELECTROLYTE IMBALANCE [None]
  - HYPONATRAEMIA [None]
  - INAPPROPRIATE ANTIDIURETIC HORMONE SECRETION [None]
  - LUNG CANCER METASTATIC [None]
  - MUSCLE TWITCHING [None]
  - POLYDIPSIA [None]
